FAERS Safety Report 6206512-2 (Version None)
Quarter: 2009Q2

REPORT INFORMATION
  Report Type: 
  Country: None (occurrence: None)
  Receive Date: 20090528
  Receipt Date: 20090518
  Transmission Date: 20091009
  Serious: Yes (Hospitalization)
  Sender: FDA-Public Use
  Company Number: BE-AMGEN-US348296

PATIENT
  Age: 72 Year
  Sex: Male

DRUGS (12)
  1. ENBREL [Suspect]
     Indication: RHEUMATOID ARTHRITIS
     Route: 058
     Dates: start: 20070919
  2. ENBREL [Suspect]
     Dosage: NOT PROVIDED
     Route: 058
     Dates: start: 20080515
  3. PREDNISOLONE [Concomitant]
     Indication: RHEUMATOID ARTHRITIS
  4. ZYLORIC [Concomitant]
     Route: 048
  5. AMLODIPINE BESYLATE [Concomitant]
     Route: 048
  6. BRICANYL [Concomitant]
     Dosage: ONCE DAILY
  7. GLUCOPHAGE [Concomitant]
  8. XANAX [Concomitant]
  9. MINOCYCLINE HCL [Concomitant]
  10. ZOLPIDEM [Concomitant]
     Dosage: 1 TABLET A DAY
  11. LEDERTREXATE [Concomitant]
     Indication: RHEUMATOID ARTHRITIS
     Route: 048
  12. DIAMICRON [Concomitant]

REACTIONS (2)
  - DYSPNOEA EXERTIONAL [None]
  - PULMONARY EMBOLISM [None]
